FAERS Safety Report 17742488 (Version 1)
Quarter: 2020Q2

REPORT INFORMATION
  Report Type: Spontaneous
  Country: DK (occurrence: DK)
  Receive Date: 20200504
  Receipt Date: 20200504
  Transmission Date: 20200714
  Serious: Yes (Hospitalization)
  Sender: FDA-Public Use
  Company Number: DK-JNJFOC-20200430862

PATIENT
  Age: 33 Year
  Sex: Female

DRUGS (1)
  1. IMODIUM [Suspect]
     Active Substance: LOPERAMIDE HYDROCHLORIDE
     Indication: AGGRESSION
     Dosage: 160 MG DAILY
     Route: 065

REACTIONS (7)
  - Product use in unapproved indication [Unknown]
  - Drug withdrawal syndrome [Recovered/Resolved]
  - Aggression [Recovered/Resolved]
  - Constipation [Recovered/Resolved]
  - Off label use [Unknown]
  - Musculoskeletal stiffness [Recovered/Resolved]
  - Headache [Recovered/Resolved]
